FAERS Safety Report 13970980 (Version 1)
Quarter: 2017Q3

REPORT INFORMATION
  Report Type: Spontaneous
  Country: US (occurrence: US)
  Receive Date: 20170914
  Receipt Date: 20170914
  Transmission Date: 20171128
  Serious: No
  Sender: FDA-Public Use
  Company Number: US-ASTELLAS-2016US035614

PATIENT
  Age: 60 Year
  Sex: Male

DRUGS (2)
  1. XTANDI [Suspect]
     Active Substance: ENZALUTAMIDE
     Indication: PROSTATE CANCER
     Route: 048
     Dates: start: 20160826
  2. XTANDI [Suspect]
     Active Substance: ENZALUTAMIDE
     Indication: PROSTATE CANCER METASTATIC
     Route: 048
     Dates: start: 20160829

REACTIONS (14)
  - Feeling abnormal [Unknown]
  - Vertigo [Unknown]
  - Fatigue [Unknown]
  - Wrong technique in product usage process [Unknown]
  - Vision blurred [Unknown]
  - Headache [Unknown]
  - Muscle atrophy [Unknown]
  - Hot flush [Unknown]
  - Rhinorrhoea [Unknown]
  - Depression [Unknown]
  - Neuropathy peripheral [Unknown]
  - Product size issue [Unknown]
  - Pain [Unknown]
  - Amnesia [Unknown]

NARRATIVE: CASE EVENT DATE: 20170419
